FAERS Safety Report 10249015 (Version 1)
Quarter: 2014Q2

REPORT INFORMATION
  Report Type: Spontaneous
  Country: US (occurrence: None)
  Receive Date: 20140522
  Receipt Date: 20140522
  Transmission Date: 20141212
  Serious: No
  Sender: FDA-Public Use
  Company Number: 1000065718

PATIENT
  Age: 53 Year
  Sex: Female

DRUGS (5)
  1. TUDORZA PRESSAIR (ACLIDINIUM BROMIDE) (400 MICROGRAM, POWDER) [Suspect]
     Indication: ASTHMA EXERCISE INDUCED
     Route: 055
     Dates: start: 201402
  2. ACCOLATE [Suspect]
     Indication: ASTHMA
     Route: 048
     Dates: start: 201403
  3. ADVAIR DISKUS [Concomitant]
  4. PRO-AIR (PROCATEROL HYDROCHLORIDE) [Concomitant]
  5. ZYRTEC (CETIRIZINE HYDROCHLORIDE) [Concomitant]

REACTIONS (2)
  - Hepatic enzyme increased [None]
  - Dysphonia [None]
